FAERS Safety Report 5274014-6 (Version None)
Quarter: 2007Q1

REPORT INFORMATION
  Report Type: 
  Country: None (occurrence: None)
  Receive Date: 20070323
  Receipt Date: 20070319
  Transmission Date: 20070707
  Serious: Yes (Hospitalization)
  Sender: FDA-Public Use
  Company Number: IT-GLAXOSMITHKLINE-B0463088A

PATIENT
  Age: 81 Year
  Sex: Female

DRUGS (6)
  1. DICLOFENAC SODIUM [Suspect]
     Indication: HERPES ZOSTER
     Dosage: 100MG TWICE PER DAY
     Route: 048
     Dates: start: 20070227, end: 20070303
  2. TALAVIR [Suspect]
     Indication: HERPES ZOSTER
     Dosage: 1G THREE TIMES PER DAY
     Route: 048
     Dates: start: 20070228, end: 20070303
  3. ASPIRIN [Concomitant]
     Route: 048
  4. METFORMIN HYDROCHLORIDE [Concomitant]
     Dosage: 3G PER DAY
     Route: 048
  5. PIOGLITAZONE [Concomitant]
     Dosage: 15MG PER DAY
     Route: 048
  6. VALSARTAN AND HYDROCHLOROTHIAZIDE [Concomitant]
     Route: 048

REACTIONS (5)
  - CONFUSIONAL STATE [None]
  - DIZZINESS [None]
  - GAIT DISTURBANCE [None]
  - NAUSEA [None]
  - RENAL FAILURE ACUTE [None]
